FAERS Safety Report 7829159-0 (Version None)
Quarter: 2011Q4

REPORT INFORMATION
  Report Type: 
  Country: None (occurrence: None)
  Receive Date: 20111020
  Receipt Date: 20111012
  Transmission Date: 20120403
  Serious: Yes (Hospitalization, Other)
  Sender: FDA-Public Use
  Company Number: PHHY2011BR91235

PATIENT
  Sex: Female
  Weight: 115 kg

DRUGS (4)
  1. NIMESULIDE [Concomitant]
     Indication: INFLAMMATION
     Dosage: 1 DF, EVERY 8 HOUR
     Route: 048
  2. EXFORGE [Suspect]
     Indication: HYPERTENSION
     Dosage: 1 DF, QD (160 MG VALS AND 5 MG AMLO)
     Route: 048
  3. ACETAMINOPHEN W/ CODEINE [Concomitant]
     Indication: PAIN
     Dosage: 1 DF, UNK
     Route: 048
     Dates: start: 20111006
  4. PLANTAGO OVATA HUSK [Concomitant]
     Indication: FUNCTIONAL GASTROINTESTINAL DISORDER
     Dosage: 1 DF (1 SACHET BEFORE SLEEP)
     Route: 048
     Dates: start: 20111006

REACTIONS (2)
  - ANAL FISTULA [None]
  - HAEMORRHOIDS [None]
